FAERS Safety Report 9693895 (Version 1)
Quarter: 2013Q4

REPORT INFORMATION
  Report Type: Spontaneous
  Country: US (occurrence: US)
  Receive Date: 20131118
  Receipt Date: 20131118
  Transmission Date: 20140711
  Serious: Yes (Hospitalization)
  Sender: FDA-Public Use
  Company Number: US-PFIZER INC-2013324667

PATIENT
  Age: 62 Year
  Sex: Male
  Weight: 77.09 kg

DRUGS (2)
  1. PRISTIQ [Suspect]
     Indication: MAJOR DEPRESSION
     Dosage: 100 MG, 1X/DAY
  2. LISINOPRIL [Concomitant]
     Indication: HYPERTENSION
     Dosage: UNK

REACTIONS (9)
  - Syringomyelia [Recovering/Resolving]
  - Accident [Unknown]
  - Muscular weakness [Unknown]
  - Hypoaesthesia [Recovering/Resolving]
  - Paraesthesia [Recovering/Resolving]
  - Dysuria [Unknown]
  - Pollakiuria [Unknown]
  - Anorectal disorder [Recovering/Resolving]
  - Gout [Unknown]
